FAERS Safety Report 7750652-3 (Version None)
Quarter: 2011Q3

REPORT INFORMATION
  Report Type: 
  Country: None (occurrence: None)
  Receive Date: 20110914
  Receipt Date: 20110809
  Transmission Date: 20111222
  Serious: Yes (Hospitalization)
  Sender: FDA-Public Use
  Company Number: JP-GLAXOSMITHKLINE-B0739169A

PATIENT
  Sex: Male

DRUGS (3)
  1. ZESTROMIN [Concomitant]
     Indication: INSOMNIA
     Route: 048
     Dates: start: 20110622, end: 20110726
  2. LAMICTAL [Suspect]
     Indication: BIPOLAR DISORDER
     Dosage: 25MG PER DAY
     Route: 048
     Dates: start: 20110622, end: 20110726
  3. VALPROATE SODIUM [Concomitant]
     Indication: BIPOLAR I DISORDER
     Dosage: 400MG PER DAY
     Route: 048
     Dates: start: 20110629, end: 20110726

REACTIONS (6)
  - RASH [None]
  - DRUG RASH WITH EOSINOPHILIA AND SYSTEMIC SYMPTOMS [None]
  - EOSINOPHIL PERCENTAGE INCREASED [None]
  - PYREXIA [None]
  - DIARRHOEA [None]
  - HUMAN HERPESVIRUS 6 INFECTION [None]
